FAERS Safety Report 8937126 (Version 1)
Quarter: 2012Q4

REPORT INFORMATION
  Report Type: Spontaneous
  Country: US (occurrence: None)
  Receive Date: 20121128
  Receipt Date: 20121128
  Transmission Date: 20130627
  Serious: Yes (Other)
  Sender: FDA-Public Use
  Company Number: None

PATIENT
  Age: 45 Year
  Sex: Female
  Weight: 70.31 kg

DRUGS (1)
  1. PREDNISONE [Suspect]
     Indication: KNEE SURGERY NOS
     Dates: start: 20121113, end: 20121121

REACTIONS (10)
  - Erythema [None]
  - Feeling hot [None]
  - Vision blurred [None]
  - Eye swelling [None]
  - Facial pain [None]
  - Pain [None]
  - Feeling abnormal [None]
  - Eye pain [None]
  - Auricular swelling [None]
  - Local swelling [None]
